FAERS Safety Report 5232654-4 (Version None)
Quarter: 2007Q1

REPORT INFORMATION
  Report Type: 
  Country: None (occurrence: None)
  Receive Date: 20070206
  Receipt Date: 20070206
  Transmission Date: 20070707
  Serious: Yes (Other)
  Sender: FDA-Public Use
  Company Number: None

PATIENT
  Age: 22 Year
  Sex: Male
  Weight: 68.5 kg

DRUGS (2)
  1. OCTREOTIDE ACETATE [Suspect]
     Indication: CARCINOID SYNDROME
     Dosage: SEE IMAGE
     Route: 058
     Dates: start: 20070109, end: 20070124
  2. OCTREOTIDE ACETATE [Suspect]
     Indication: DIARRHOEA
     Dosage: SEE IMAGE
     Route: 058
     Dates: start: 20070109, end: 20070124

REACTIONS (6)
  - CHEST PAIN [None]
  - DRUG EFFECT DECREASED [None]
  - DRUG INEFFECTIVE [None]
  - HEART RATE DECREASED [None]
  - NAUSEA [None]
  - VOMITING [None]
